FAERS Safety Report 5692150-7 (Version None)
Quarter: 2008Q2

REPORT INFORMATION
  Report Type: 
  Country: None (occurrence: None)
  Receive Date: 20080402
  Receipt Date: 20080327
  Transmission Date: 20081010
  Serious: Yes (Life-Threatening, Disabling, Other)
  Sender: FDA-Public Use
  Company Number: A0717872A

PATIENT
  Age: 46 Year
  Sex: Female

DRUGS (2)
  1. LAMICTAL [Suspect]
     Indication: BIPOLAR DISORDER
     Dosage: 50MG PER DAY
     Route: 048
     Dates: start: 20071209, end: 20071225
  2. ZOLOFT [Concomitant]

REACTIONS (5)
  - DYSGEUSIA [None]
  - MOUTH ULCERATION [None]
  - PAROSMIA [None]
  - SKIN ULCER [None]
  - STAPHYLOCOCCAL INFECTION [None]
